FAERS Safety Report 14213401 (Version 2)
Quarter: 2017Q4

REPORT INFORMATION
  Report Type: Report from Study
  Country: None (occurrence: US)
  Receive Date: 20171122
  Receipt Date: 20171222
  Transmission Date: 20180321
  Serious: Yes (Other)
  Sender: FDA-Public Use
  Company Number: US-ABBVIE-17K-163-1995812-00

PATIENT
  Age: 37 Year
  Sex: Female

DRUGS (1)
  1. HUMIRA [Suspect]
     Active Substance: ADALIMUMAB
     Indication: HIDRADENITIS
     Route: 058

REACTIONS (9)
  - Adnexal torsion [Recovering/Resolving]
  - Depression [Unknown]
  - Influenza [Unknown]
  - Hidradenitis [Recovered/Resolved]
  - Nasopharyngitis [Unknown]
  - Ovarian haemorrhage [Recovering/Resolving]
  - Ovarian prolapse [Recovering/Resolving]
  - Post procedural sepsis [Unknown]
  - Premenstrual dysphoric disorder [Unknown]

NARRATIVE: CASE EVENT DATE: 201612
